FAERS Safety Report 9134003 (Version 3)
Quarter: 2013Q2

REPORT INFORMATION
  Report Type: Spontaneous
  Country: US (occurrence: US)
  Receive Date: 20130304
  Receipt Date: 20130410
  Transmission Date: 20140414
  Serious: Yes (Hospitalization)
  Sender: FDA-Public Use
  Company Number: US-009507513-1302USA013200

PATIENT
  Sex: Male

DRUGS (4)
  1. DULERA [Suspect]
     Indication: ASTHMA
     Dosage: UNK
     Route: 055
     Dates: start: 2010, end: 201302
  2. DULERA [Suspect]
     Dosage: UNK
     Route: 055
     Dates: start: 2013
  3. DUONEB [Concomitant]
  4. XOPENEX [Concomitant]

REACTIONS (1)
  - Pneumonia [Recovered/Resolved]
